FAERS Safety Report 21103293 (Version 2)
Quarter: 2022Q3

REPORT INFORMATION
  Report Type: Report from Study
  Country: CA (occurrence: CA)
  Receive Date: 20220720
  Receipt Date: 20220912
  Transmission Date: 20221027
  Serious: Yes (Death, Hospitalization, Other)
  Sender: FDA-Public Use
  Company Number: CA-ABBVIE-22K-028-4474759-00

PATIENT
  Age: 87 Year
  Sex: Female

DRUGS (2)
  1. VENCLEXTA [Suspect]
     Active Substance: VENETOCLAX
     Indication: Acute myeloid leukaemia
     Route: 048
     Dates: start: 20210705, end: 2021
  2. AZATADINE [Concomitant]
     Active Substance: AZATADINE
     Indication: Product used for unknown indication
     Route: 065

REACTIONS (12)
  - Death [Fatal]
  - Myelosuppression [Unknown]
  - Pleural effusion [Unknown]
  - Clostridium difficile colitis [Unknown]
  - Confusional state [Unknown]
  - Hypoxia [Unknown]
  - Pleural effusion [Unknown]
  - Asthenia [Unknown]
  - Febrile neutropenia [Unknown]
  - Bronchopulmonary aspergillosis [Unknown]
  - Pyrexia [Not Recovered/Not Resolved]
  - Infectious pleural effusion [Unknown]

NARRATIVE: CASE EVENT DATE: 20210718
